FAERS Safety Report 19263659 (Version 1)
Quarter: 2021Q2

REPORT INFORMATION
  Report Type: Spontaneous
  Country: US (occurrence: US)
  Receive Date: 20210514
  Receipt Date: 20210514
  Transmission Date: 20210717
  Serious: Yes (Other)
  Sender: FDA-Public Use
  Company Number: None

PATIENT
  Age: 17 Year
  Sex: Male
  Weight: 130 kg

DRUGS (6)
  1. ETOPOSIDE. [Suspect]
     Active Substance: ETOPOSIDE
     Indication: HODGKIN^S DISEASE STAGE IV
     Route: 042
     Dates: start: 20191220, end: 20200407
  2. DOXORUBICIN 25 MG/M2 IV DAYS 1?2, REPEAT Q21D X5 CYCLES [Concomitant]
     Dates: start: 20191220, end: 20200407
  3. BLEOMYCIN 10 UNITS/M2 IV DAYS 1 AND 8, REPEAT Q21D X5 CYCLES [Concomitant]
     Dates: start: 20191220, end: 20200407
  4. CYCLOPHOSPHAMIDE 600 MG/M2 IV DAYS 1?2, REPEAT Q21D X5 CYCLES [Concomitant]
     Dates: start: 20191220, end: 20200407
  5. PREDNISONE 50 MG BID X 7 DAYS, REPEAT Q21D X5 CYCLES [Concomitant]
     Dates: start: 20191220, end: 20200407
  6. ETOPOSIDE. [Suspect]
     Active Substance: ETOPOSIDE
     Indication: HODGKIN^S DISEASE
     Route: 042
     Dates: start: 20191220, end: 20200407

REACTIONS (6)
  - Lip swelling [None]
  - Flushing [None]
  - Hyperhidrosis [None]
  - Cough [None]
  - Dyspnoea [None]
  - Product substitution issue [None]

NARRATIVE: CASE EVENT DATE: 20200113
